FAERS Safety Report 19270159 (Version 2)
Quarter: 2021Q2

REPORT INFORMATION
  Report Type: Report from Study
  Country: PA (occurrence: PA)
  Receive Date: 20210518
  Receipt Date: 20210531
  Transmission Date: 20210717
  Serious: Yes (Other)
  Sender: FDA-Public Use
  Company Number: NVSC2021PA102329

PATIENT
  Age: 53 Year
  Sex: Female

DRUGS (5)
  1. KISQALI [Suspect]
     Active Substance: RIBOCICLIB
     Indication: BREAST CANCER METASTATIC
     Dosage: 400 MG, QD
     Route: 048
     Dates: start: 20181101, end: 201902
  2. KISQALI [Suspect]
     Active Substance: RIBOCICLIB
     Dosage: 3 DF, QD
     Route: 048
     Dates: start: 20210301
  3. KISQALI [Suspect]
     Active Substance: RIBOCICLIB
     Dosage: 400 MG, QD
     Route: 048
     Dates: start: 20210226
  4. EXEMESTANE. [Concomitant]
     Active Substance: EXEMESTANE
     Indication: PRODUCT USED FOR UNKNOWN INDICATION
     Dosage: UNK
     Route: 065
  5. AROMASIL [Concomitant]
     Active Substance: EXEMESTANE
     Indication: HORMONE THERAPY
     Dosage: 25 MG
     Route: 065

REACTIONS (7)
  - Breast cancer recurrent [Unknown]
  - Tumour marker decreased [Unknown]
  - Tumour marker abnormal [Unknown]
  - Hypersensitivity [Unknown]
  - Gait disturbance [Unknown]
  - Bone disorder [Unknown]
  - Seizure [Unknown]

NARRATIVE: CASE EVENT DATE: 2018
